FAERS Safety Report 6206165-3 (Version None)
Quarter: 2009Q2

REPORT INFORMATION
  Report Type: 
  Country: None (occurrence: None)
  Receive Date: 20090528
  Receipt Date: 20080711
  Transmission Date: 20091009
  Serious: No
  Sender: FDA-Public Use
  Company Number: US-KINGPHARMUSA00001-K200800820

PATIENT
  Age: 60 Year
  Sex: Female

DRUGS (4)
  1. AVINZA [Suspect]
     Indication: PAIN
     Dosage: 30 MG, QD
     Route: 048
     Dates: start: 20080601
  2. OXYCODONE HCL [Suspect]
     Dosage: UNK
     Dates: end: 20080701
  3. CLONAZEPAM [Concomitant]
     Indication: INSOMNIA
  4. ESTROGEN/PROGESTERONE [Concomitant]
     Indication: HORMONE REPLACEMENT THERAPY
     Dosage: UNK, UNK

REACTIONS (1)
  - LIBIDO DECREASED [None]
